FAERS Safety Report 6600521-7 (Version None)
Quarter: 2010Q1

REPORT INFORMATION
  Report Type: 
  Country: None (occurrence: None)
  Receive Date: 20100224
  Receipt Date: 20100222
  Transmission Date: 20100710
  Serious: Yes (Death, Hospitalization)
  Sender: FDA-Public Use
  Company Number: GB-MERCK-0911GBR00050

PATIENT
  Age: 14 Year
  Sex: Male

DRUGS (6)
  1. CANCIDAS [Suspect]
     Indication: ASPERGILLOSIS
     Route: 048
  2. VORICONAZOLE [Concomitant]
     Indication: ASPERGILLOSIS
     Route: 065
  3. GRANULOCYTE COLONY STIMULATING FACTOR (UNSPECIFIED) [Concomitant]
     Route: 065
  4. INTERFERON GAMMA [Concomitant]
     Route: 065
  5. METHYLPREDNISOLONE [Concomitant]
     Indication: VASCULITIS
     Route: 042
  6. METHYLPREDNISOLONE [Concomitant]
     Route: 042

REACTIONS (4)
  - ANGIOPATHY [None]
  - CHRONIC GRANULOMATOUS DISEASE [None]
  - DRUG INEFFECTIVE [None]
  - MULTI-ORGAN FAILURE [None]
